FAERS Safety Report 15565933 (Version 1)
Quarter: 2018Q4

REPORT INFORMATION
  Report Type: Spontaneous
  Country: US (occurrence: US)
  Receive Date: 20181025
  Receipt Date: 20181025
  Transmission Date: 20190205
  Serious: Yes (Disabling)
  Sender: FDA-Public Use
  Company Number: None

PATIENT
  Age: 51 Year
  Sex: Male
  Weight: 114.31 kg

DRUGS (8)
  1. SUCRALFATE. [Concomitant]
     Active Substance: SUCRALFATE
  2. DOXYCYCLINE HYCLATE 180MG TAB [Suspect]
     Active Substance: DOXYCYCLINE HYCLATE
     Indication: CELLULITIS
     Dosage: ?          QUANTITY:100 MG MILLIGRAM(S);?
     Route: 048
     Dates: start: 20180709, end: 20180718
  3. DOXYCYCLINE HYCLATE 180MG TAB [Suspect]
     Active Substance: DOXYCYCLINE HYCLATE
     Indication: BACTERIAL INFECTION
     Dosage: ?          QUANTITY:100 MG MILLIGRAM(S);?
     Route: 048
     Dates: start: 20180709, end: 20180718
  4. OMEPRAZOLE. [Concomitant]
     Active Substance: OMEPRAZOLE
  5. METFORMIN HCL [Concomitant]
     Active Substance: METFORMIN HYDROCHLORIDE
  6. GLIPIZIDE. [Concomitant]
     Active Substance: GLIPIZIDE
  7. BENAZEPRIL HCT [Concomitant]
  8. METOPROLOL TARTRATE. [Concomitant]
     Active Substance: METOPROLOL TARTRATE

REACTIONS (11)
  - Sensory loss [None]
  - Testicular swelling [None]
  - Gastrointestinal mucosal disorder [None]
  - Perineal disorder [None]
  - Pyrexia [None]
  - Anorectal disorder [None]
  - Haemoptysis [None]
  - Skin discolouration [None]
  - Penile swelling [None]
  - Testicular disorder [None]
  - Penis disorder [None]

NARRATIVE: CASE EVENT DATE: 20180718
